FAERS Safety Report 6781460-8 (Version None)
Quarter: 2010Q2

REPORT INFORMATION
  Report Type: 
  Country: None (occurrence: None)
  Receive Date: 20100621
  Receipt Date: 20100602
  Transmission Date: 20101027
  Serious: Yes (Hospitalization, Other)
  Sender: FDA-Public Use
  Company Number: US-BAYER-200942884NA

PATIENT
  Age: 26 Year
  Sex: Female

DRUGS (10)
  1. YASMIN [Suspect]
     Indication: ORAL CONTRACEPTION
     Route: 048
     Dates: start: 20080401, end: 20080801
  2. YAZ [Suspect]
     Indication: ORAL CONTRACEPTION
     Route: 048
     Dates: start: 20080401, end: 20080801
  3. OCELLA [Suspect]
     Indication: ORAL CONTRACEPTION
     Route: 048
     Dates: start: 20080901, end: 20081201
  4. DOXYCYCLIN [Concomitant]
     Dates: start: 20080801
  5. DECADRON [Concomitant]
     Dates: start: 20081101
  6. OXYCODONE [Concomitant]
     Dates: start: 20060101, end: 20080101
  7. HYDROCODONE [Concomitant]
     Dates: start: 20040101, end: 20090101
  8. WARFARIN [Concomitant]
     Dates: start: 20080201, end: 20090101
  9. TYLENOL WITH CODEIN #2 [Concomitant]
     Dates: start: 20081201
  10. CIPRO [Concomitant]
     Dates: start: 20081101

REACTIONS (5)
  - DEEP VEIN THROMBOSIS [None]
  - OEDEMA PERIPHERAL [None]
  - PAIN [None]
  - PAIN IN EXTREMITY [None]
  - PULMONARY EMBOLISM [None]
